FAERS Safety Report 4789019-9 (Version None)
Quarter: 2005Q3

REPORT INFORMATION
  Report Type: 
  Country: None (occurrence: None)
  Receive Date: 20050915
  Receipt Date: 20050804
  Transmission Date: 20060218
  Serious: Yes (Other)
  Sender: FDA-Public Use
  Company Number: BDI-007435

PATIENT
  Age: 56 Year
  Sex: Male

DRUGS (8)
  1. MULTIHANCE [Suspect]
     Indication: HYPOAESTHESIA
     Dosage: 15 ML ONCE IV
     Route: 042
     Dates: start: 20050728, end: 20050728
  2. MULTIHANCE [Suspect]
     Indication: NUCLEAR MAGNETIC RESONANCE IMAGING
     Dosage: 15 ML ONCE IV
     Route: 042
     Dates: start: 20050728, end: 20050728
  3. POTASSIUM [Concomitant]
  4. NORVASC  /00972401/ [Concomitant]
  5. DIURETICS [Concomitant]
  6. COUMADIN [Concomitant]
  7. AMIODARONE [Concomitant]
  8. DIGITEK [Concomitant]

REACTIONS (1)
  - ANAPHYLACTOID REACTION [None]
